FAERS Safety Report 8273595-8 (Version None)
Quarter: 2012Q2

REPORT INFORMATION
  Report Type: 
  Country: None (occurrence: None)
  Receive Date: 20120411
  Receipt Date: 20120330
  Transmission Date: 20120825
  Serious: Yes (Hospitalization)
  Sender: FDA-Public Use
  Company Number: US-BRISTOL-MYERS SQUIBB COMPANY-16491573

PATIENT
  Age: 74 Year
  Sex: Male
  Weight: 63 kg

DRUGS (8)
  1. MEGACE ES [Concomitant]
  2. CARBOPLATIN [Suspect]
     Indication: NON-SMALL CELL LUNG CANCER
     Dosage: LAST ADMIN DT 13FEB12
     Dates: start: 20111107, end: 20120213
  3. TAXOL [Suspect]
     Indication: NON-SMALL CELL LUNG CANCER
     Dosage: LAST ADMIN DT 23JAN12
     Dates: start: 20111107, end: 20120123
  4. COUMADIN [Concomitant]
  5. ERBITUX [Suspect]
     Indication: NON-SMALL CELL LUNG CANCER
     Dosage: LAST ADMIN DT 27FEB12
     Dates: start: 20111107, end: 20120227
  6. ALBUTEROL [Concomitant]
  7. MAGIC MOUTHWASH [Concomitant]
  8. PROVENTIL [Concomitant]

REACTIONS (4)
  - PNEUMONITIS [None]
  - DYSPNOEA [None]
  - ANGINA PECTORIS [None]
  - ATRIAL FIBRILLATION [None]
